FAERS Safety Report 6411836-X (Version None)
Quarter: 2009Q4

REPORT INFORMATION
  Report Type: 
  Country: None (occurrence: None)
  Receive Date: 20091020
  Receipt Date: 20031114
  Transmission Date: 20100525
  Serious: Yes (Hospitalization)
  Sender: FDA-Public Use
  Company Number: 2009009135

PATIENT
  Age: 41 Year
  Sex: Male

DRUGS (2)
  1. ACTIQ [Suspect]
     Indication: CROHN'S DISEASE
     Dosage: 800 MG, BU
     Route: 002
  2. NORCO [Concomitant]

REACTIONS (3)
  - CROHN'S DISEASE [None]
  - DISEASE PROGRESSION [None]
  - HAEMOGLOBIN DECREASED [None]
